FAERS Safety Report 7278085-7 (Version None)
Quarter: 2011Q1

REPORT INFORMATION
  Report Type: 
  Country: None (occurrence: None)
  Receive Date: 20110207
  Receipt Date: 20110131
  Transmission Date: 20110831
  Serious: Yes (Hospitalization, Other)
  Sender: FDA-Public Use
  Company Number: US-TEVA-265309USA

PATIENT
  Age: 16 Year
  Sex: Male

DRUGS (4)
  1. CAFFEINE [Suspect]
  2. LITHIUM [Concomitant]
  3. ARIPIPRAZOLE [Suspect]
     Indication: BIPOLAR DISORDER
  4. FLUOXETINE CAPSULE 10MG,20MG [Suspect]
     Indication: BIPOLAR DISORDER
     Dosage: 30 MG DAILY

REACTIONS (3)
  - DRUG RASH WITH EOSINOPHILIA AND SYSTEMIC SYMPTOMS [None]
  - RHABDOMYOLYSIS [None]
  - DRUG INTERACTION [None]
